FAERS Safety Report 14988893 (Version 1)
Quarter: 2018Q2

REPORT INFORMATION
  Report Type: Spontaneous
  Country: DE (occurrence: DE)
  Receive Date: 20180608
  Receipt Date: 20180608
  Transmission Date: 20180711
  Serious: Yes (Hospitalization)
  Sender: FDA-Public Use
  Company Number: DE-TEVA-2018-DE-903016

PATIENT
  Age: 74 Year
  Sex: Female

DRUGS (8)
  1. LEVOTHYROXINE SODIUM. [Concomitant]
     Active Substance: LEVOTHYROXINE SODIUM
     Dosage: 50 MICROG / TAG, 1-0-0-0
  2. INSUMAN RAPID [Concomitant]
     Active Substance: INSULIN HUMAN
  3. METOPROLOL. [Concomitant]
     Active Substance: METOPROLOL
     Dosage: 47.5 MG, 1-0-1-0
  4. CLOPIDOGREL [Suspect]
     Active Substance: CLOPIDOGREL BISULFATE
     Dosage: 75 MG, 1-0-0-0
  5. PANTOPRAZOL [Concomitant]
     Active Substance: PANTOPRAZOLE SODIUM
     Dosage: 40 MG, 1-0-0-0
  6. LANTUS [Concomitant]
     Active Substance: INSULIN GLARGINE
     Dosage: 16 IE, 0-0-1-0
  7. VALSARTAN. [Concomitant]
     Active Substance: VALSARTAN
     Dosage: 80 MG, 1-0-0-0
  8. ENOXAPARIN [Suspect]
     Active Substance: ENOXAPARIN
     Dosage: 0.4 ML, 0-0-1-0

REACTIONS (2)
  - Constipation [Unknown]
  - Haematuria [Unknown]
